FAERS Safety Report 21779202 (Version 1)
Quarter: 2022Q4

REPORT INFORMATION
  Report Type: Report from Study
  Country: KR (occurrence: KR)
  Receive Date: 20221226
  Receipt Date: 20221226
  Transmission Date: 20230113
  Serious: Yes (Hospitalization, Other)
  Sender: FDA-Public Use
  Company Number: KR-MYLANLABS-2022M1146133

PATIENT
  Age: 67 Year
  Sex: Female

DRUGS (10)
  1. TRASTUZUMAB [Suspect]
     Active Substance: TRASTUZUMAB
     Indication: Metastases to breast
     Dosage: 449.6 MILLIGRAM, Q3W
     Route: 042
     Dates: start: 20200227, end: 20200612
  2. CHLORPHENIRAMINE MALEATE [Concomitant]
     Active Substance: CHLORPHENIRAMINE MALEATE
     Dosage: 4 MILLIGRAM, QD
     Route: 042
     Dates: start: 20200227, end: 20200612
  3. VALSARTAN [Concomitant]
     Active Substance: VALSARTAN
     Indication: Essential hypertension
     Dosage: 80 MILLIGRAM
     Route: 048
     Dates: start: 20200226
  4. CARBOPLATIN [Concomitant]
     Active Substance: CARBOPLATIN
     Dosage: 431.55 MILLIGRAM, Q3W
     Route: 042
     Dates: start: 20200228, end: 20200612
  5. DEXAMETHASONE [Concomitant]
     Active Substance: DEXAMETHASONE
     Dosage: 10 MILLIGRAM, QD
     Route: 042
     Dates: start: 20200228, end: 20200612
  6. ACETAMINOPHEN [Concomitant]
     Active Substance: ACETAMINOPHEN
     Dosage: 650 MILLIGRAM, QD
     Route: 048
     Dates: start: 20200228, end: 20200612
  7. NEURONTIN [Concomitant]
     Active Substance: GABAPENTIN
     Dosage: 300 MILLIGRAM, QD
     Route: 048
     Dates: start: 20200228, end: 20200612
  8. BENZYDAMINE HYDROCHLORIDE [Concomitant]
     Active Substance: BENZYDAMINE HYDROCHLORIDE
     Dosage: 300 MILLILITER
     Route: 065
     Dates: start: 20200228, end: 20200612
  9. PALONOSETRON HYDROCHLORIDE [Concomitant]
     Active Substance: PALONOSETRON HYDROCHLORIDE
     Dosage: 0.25 MILLIGRAM, QD
     Route: 042
     Dates: start: 20200228, end: 20200612
  10. LOPERAMIDE HYDROCHLORIDE [Concomitant]
     Active Substance: LOPERAMIDE HYDROCHLORIDE
     Dosage: 4 MILLIGRAM, QD
     Route: 048
     Dates: start: 20200229, end: 20200612

REACTIONS (8)
  - Haematochezia [Recovered/Resolved]
  - Alopecia [Recovering/Resolving]
  - Diarrhoea [Recovered/Resolved]
  - Vomiting [Recovered/Resolved]
  - Anaemia [Not Recovered/Not Resolved]
  - Stomatitis [Recovered/Resolved]
  - Oedema peripheral [Recovered/Resolved]
  - Off label use [Unknown]

NARRATIVE: CASE EVENT DATE: 20200227
